FAERS Safety Report 25956729 (Version 2)
Quarter: 2025Q4

REPORT INFORMATION
  Report Type: Spontaneous
  Country: EU (occurrence: EU)
  Receive Date: 20251024
  Receipt Date: 20251112
  Transmission Date: 20260117
  Serious: No
  Sender: AVERITAS
  Company Number: EU-GRUNENTHAL-2025-121739

PATIENT
  Sex: Female

DRUGS (6)
  1. QUTENZA [Suspect]
     Active Substance: CAPSAICIN
     Indication: Product used for unknown indication
     Dosage: UNK UNK, ONCE
     Route: 003
     Dates: start: 202503, end: 202503
  2. QUTENZA [Suspect]
     Active Substance: CAPSAICIN
     Dosage: UNK UNK, ONCE
     Route: 003
     Dates: start: 20250625, end: 20250625
  3. EFFEXOR [Concomitant]
     Active Substance: VENLAFAXINE HYDROCHLORIDE
     Indication: Pain
     Dosage: UNK
     Route: 065
  4. ALPRAZOLAM [Concomitant]
     Active Substance: ALPRAZOLAM
     Indication: Pain
     Dosage: UNK
     Route: 065
  5. NEURONTIN [Concomitant]
     Active Substance: GABAPENTIN
     Indication: Pain
     Dosage: UNK
     Route: 065
  6. MIANSERIN [Concomitant]
     Active Substance: MIANSERIN
     Indication: Pain
     Dosage: UNK
     Route: 065

REACTIONS (2)
  - Application site pain [Unknown]
  - Application site burn [Recovered/Resolved]
